FAERS Safety Report 16832025 (Version 1)
Quarter: 2019Q3

REPORT INFORMATION
  Report Type: Spontaneous
  Country: CN (occurrence: CN)
  Receive Date: 20190920
  Receipt Date: 20190920
  Transmission Date: 20191005
  Serious: Yes (Hospitalization)
  Sender: FDA-Public Use
  Company Number: CN-ROCHE-2414782

PATIENT
  Age: 75 Year
  Sex: Female

DRUGS (2)
  1. PACLITAXEL LIPOSOME [Suspect]
     Active Substance: PACLITAXEL
     Indication: CHEMOTHERAPY
     Route: 041
     Dates: start: 20190815, end: 20190815
  2. AVASTIN [Suspect]
     Active Substance: BEVACIZUMAB
     Indication: CHEMOTHERAPY
     Route: 041
     Dates: start: 20190815, end: 20190815

REACTIONS (1)
  - Bone marrow failure [Recovering/Resolving]

NARRATIVE: CASE EVENT DATE: 20190817
